FAERS Safety Report 11876246 (Version 1)
Quarter: 2015Q4

REPORT INFORMATION
  Report Type: Spontaneous
  Country: US (occurrence: US)
  Receive Date: 20151229
  Receipt Date: 20151229
  Transmission Date: 20160305
  Serious: No
  Sender: FDA-Public Use
  Company Number: US-ELI_LILLY_AND_COMPANY-US201512008451

PATIENT
  Sex: Male

DRUGS (7)
  1. AXIRON [Concomitant]
     Active Substance: TESTOSTERONE
     Indication: BLOOD TESTOSTERONE DECREASED
     Dosage: 2 DF, QD
     Route: 065
     Dates: start: 2012, end: 201505
  2. ULTRAM [Concomitant]
     Active Substance: TRAMADOL HYDROCHLORIDE
     Dosage: UNK, UNKNOWN
     Route: 065
  3. DICLOFENAC [Concomitant]
     Active Substance: DICLOFENAC
     Dosage: UNK, UNKNOWN
     Route: 065
  4. XANAX [Concomitant]
     Active Substance: ALPRAZOLAM
     Dosage: UNK, UNKNOWN
     Route: 065
  5. AXIRON [Concomitant]
     Active Substance: TESTOSTERONE
     Dosage: 0.5 DF, QD
     Route: 065
     Dates: start: 20151030
  6. CIALIS [Suspect]
     Active Substance: TADALAFIL
     Indication: ERECTILE DYSFUNCTION
     Dosage: 5 MG, PRN
     Route: 065
     Dates: start: 2013
  7. LISINOPRIL. [Concomitant]
     Active Substance: LISINOPRIL
     Dosage: UNK, UNKNOWN
     Route: 065

REACTIONS (2)
  - Restlessness [Unknown]
  - Flushing [Unknown]
